FAERS Safety Report 9511985 (Version 1)
Quarter: 2013Q1

REPORT INFORMATION
  Report Type: Spontaneous
  Country: US (occurrence: None)
  Receive Date: 20130305
  Receipt Date: 20130305
  Transmission Date: 20140127
  Serious: Yes (Hospitalization)
  Sender: FDA-Public Use
  Company Number: 163-21880-12010060

PATIENT
  Age: 74 Year
  Sex: Female
  Weight: 48.99 kg

DRUGS (13)
  1. REVLIMID (LENALIDOMIDE) (25 MILLIGRAM, CAPSULES) [Suspect]
     Indication: PLASMA CELL MYELOMA
     Dosage: 25 MG,1 IN 1 D, PO
     Route: 048
     Dates: start: 20111214, end: 201203
  2. VELCADE (UNKNOWN) [Concomitant]
  3. DEXAMETHASONE (DEXAMETHASONE) (UNKNOWN) [Concomitant]
  4. ASA (ACETYLSALICYLIC ACID) (UNKNOWN)? [Concomitant]
  5. CLEMASTINE (CLEMASTINE) (UNKNOWN) [Concomitant]
  6. DILAUDID (HYDROMORPHONE HYDROCHLORIDE) (UNKNOWN) [Concomitant]
  7. FLEXERIL (CYCLOBENZAPRINE HYDROCHLORIDE) (UNKNOWN) [Concomitant]
  8. MULTIVITAMINS (MULTIVITAMINS) (TABLETS) [Concomitant]
  9. NIASPAN (NICOTINIC ACID) (UNKNOWN) [Concomitant]
  10. OMEPRAZOLE (OMEPRAZOLE) (UNKNOWN) [Concomitant]
  11. ONDANSETRON (ONDANSETRON) (UNKNOWN) [Concomitant]
  12. SYNTHROID (LEVOTHYROXINE SODIUM) (UNKNOWN) [Concomitant]
  13. TRAMADOL-ACETAMINOPHEN (ULTRACET) (UNKNOWN) [Concomitant]

REACTIONS (2)
  - Cholecystitis [None]
  - Back pain [None]
